FAERS Safety Report 14560541 (Version 1)
Quarter: 2018Q1

REPORT INFORMATION
  Report Type: Report from Study
  Country: US (occurrence: US)
  Receive Date: 20180222
  Receipt Date: 20180222
  Transmission Date: 20180509
  Serious: Yes (Other)
  Sender: FDA-Public Use
  Company Number: US-ACADIA PHARMACEUTICALS INC.-ACA-2018-007418

PATIENT
  Age: 94 Year
  Sex: Male

DRUGS (3)
  1. NUPLAZID [Suspect]
     Active Substance: PIMAVANSERIN TARTRATE
     Indication: HALLUCINATION
     Dosage: 17 MG, QD
     Route: 065
     Dates: start: 20180129, end: 201801
  2. NUPLAZID [Suspect]
     Active Substance: PIMAVANSERIN TARTRATE
     Indication: DELUSION
     Dosage: 34 UNK, UNK
     Route: 065
     Dates: start: 20180201
  3. NUPLAZID [Suspect]
     Active Substance: PIMAVANSERIN TARTRATE
     Indication: PARKINSON^S DISEASE PSYCHOSIS

REACTIONS (9)
  - Nocturia [Unknown]
  - Hypotension [Unknown]
  - Prescribed underdose [Unknown]
  - Somnolence [Not Recovered/Not Resolved]
  - Muscle rigidity [Unknown]
  - Dysstasia [Unknown]
  - Therapeutic response unexpected [Unknown]
  - Productive cough [Unknown]
  - Pyrexia [Unknown]

NARRATIVE: CASE EVENT DATE: 20180129
